FAERS Safety Report 23988284 (Version 1)
Quarter: 2024Q2

REPORT INFORMATION
  Report Type: Report from Study
  Country: US (occurrence: US)
  Receive Date: 20240619
  Receipt Date: 20240619
  Transmission Date: 20240716
  Serious: No
  Sender: FDA-Public Use
  Company Number: US-ALXN-A202303184

PATIENT
  Sex: Female

DRUGS (1)
  1. ULTOMIRIS [Suspect]
     Active Substance: RAVULIZUMAB-CWVZ
     Indication: Paroxysmal nocturnal haemoglobinuria
     Dosage: UNK
     Route: 065

REACTIONS (10)
  - Alopecia [Unknown]
  - Migraine [Not Recovered/Not Resolved]
  - Feeling abnormal [Unknown]
  - Hypertension [Unknown]
  - Blood iron decreased [Unknown]
  - Gastritis [Unknown]
  - Drug intolerance [Unknown]
  - Epigastric discomfort [Unknown]
  - Abdominal pain upper [Unknown]
  - Nausea [Unknown]
